FAERS Safety Report 8806130 (Version 1)
Quarter: 2012Q4

REPORT INFORMATION
  Report Type: Spontaneous
  Country: KR (occurrence: None)
  Receive Date: 20120918
  Receipt Date: 20120918
  Transmission Date: 20130627
  Serious: Yes (Other)
  Sender: FDA-Public Use
  Company Number: DSA_59590_2012

PATIENT
  Age: 49 Year
  Sex: Male

DRUGS (8)
  1. FLUOROURACIL (FLUOROURACIL) [Suspect]
     Indication: GASTRIC CANCER
     Route: 042
  2. FERROUS SULFATE [Concomitant]
  3. ASPIRIN [Concomitant]
  4. FUROSEMIDE [Concomitant]
  5. MULTIVITAMINS [Concomitant]
  6. CALCIUM CARBONATE [Concomitant]
  7. CALCIUM CARBONATE [Concomitant]
  8. ERYTHROPOIETIN [Concomitant]

REACTIONS (5)
  - Hyperammonaemic encephalopathy [None]
  - Depressed level of consciousness [None]
  - Nausea [None]
  - Vomiting [None]
  - Tremor [None]
